FAERS Safety Report 5311330-3 (Version None)
Quarter: 2007Q2

REPORT INFORMATION
  Report Type: 
  Country: None (occurrence: None)
  Receive Date: 20070430
  Receipt Date: 20070419
  Transmission Date: 20071010
  Serious: Yes (Other)
  Sender: FDA-Public Use
  Company Number: PHFR2007GB01398

PATIENT
  Age: 26 Year
  Sex: Male

DRUGS (3)
  1. CLOZAPINE [Suspect]
     Route: 065
  2. RISPERDAL [Suspect]
     Dosage: 37.5 MG, BIW
     Route: 030
     Dates: start: 20051101
  3. RISPERDAL [Suspect]
     Dosage: 2 MG, QD
     Route: 048

REACTIONS (4)
  - BLOOD PROLACTIN INCREASED [None]
  - FATIGUE [None]
  - SEDATION [None]
  - WEIGHT INCREASED [None]
